FAERS Safety Report 4527744-5 (Version None)
Quarter: 2004Q4

REPORT INFORMATION
  Report Type: 
  Country: None (occurrence: None)
  Receive Date: 20041215
  Receipt Date: 20041206
  Transmission Date: 20050328
  Serious: Yes (Life-Threatening)
  Sender: FDA-Public Use
  Company Number: US-ROCHE-389026

PATIENT
  Age: 63 Year
  Sex: Male

DRUGS (1)
  1. CARDENE [Suspect]
     Indication: BLOOD PRESSURE ABNORMAL
     Route: 042
     Dates: start: 20041006, end: 20041006

REACTIONS (1)
  - MYOCARDIAL INFARCTION [None]
